FAERS Safety Report 21767908 (Version 3)
Quarter: 2023Q2

REPORT INFORMATION
  Report Type: Spontaneous
  Country: PL (occurrence: PL)
  Receive Date: 20221222
  Receipt Date: 20230630
  Transmission Date: 20230722
  Serious: Yes (Other)
  Sender: FDA-Public Use
  Company Number: PL-Orion Corporation ORION PHARMA-HYOR2022-0004

PATIENT
  Age: 65 Year
  Sex: Female

DRUGS (31)
  1. OXYCODONE HYDROCHLORIDE [Interacting]
     Active Substance: OXYCODONE HYDROCHLORIDE
     Indication: Colorectal cancer
     Dosage: 240 MILLIGRAM, DAILY, (240 MG PER DAY)
     Route: 048
  2. OXYCODONE HYDROCHLORIDE [Interacting]
     Active Substance: OXYCODONE HYDROCHLORIDE
     Indication: Visceral pain
     Dosage: 180 MILLIGRAM, DAILY
     Route: 048
  3. OXYCODONE HYDROCHLORIDE [Interacting]
     Active Substance: OXYCODONE HYDROCHLORIDE
     Indication: Pain
     Dosage: 240 MILLIGRAM, DAILY, (240 MG PER DAY)
     Route: 048
  4. OXYCODONE HYDROCHLORIDE [Interacting]
     Active Substance: OXYCODONE HYDROCHLORIDE
     Dosage: 240 MILLIGRAM, DAILY, (240 MG PER DAY)
     Route: 048
  5. NALOXONE HYDROCHLORIDE\OXYCODONE HYDROCHLORIDE [Suspect]
     Active Substance: NALOXONE HYDROCHLORIDE\OXYCODONE HYDROCHLORIDE
     Indication: Colorectal cancer
     Dosage: UNK
     Route: 065
  6. NALOXONE HYDROCHLORIDE\OXYCODONE HYDROCHLORIDE [Suspect]
     Active Substance: NALOXONE HYDROCHLORIDE\OXYCODONE HYDROCHLORIDE
     Indication: Visceral pain
     Dosage: 240 MILLIGRAM
     Route: 065
  7. NALOXONE HYDROCHLORIDE\OXYCODONE HYDROCHLORIDE [Suspect]
     Active Substance: NALOXONE HYDROCHLORIDE\OXYCODONE HYDROCHLORIDE
     Indication: Pain
  8. PREGABALIN [Suspect]
     Active Substance: PREGABALIN
     Indication: Colorectal cancer
     Dosage: 450 MILLIGRAM, QD,(450 MG PER DAY)
     Route: 065
  9. PREGABALIN [Suspect]
     Active Substance: PREGABALIN
     Indication: Visceral pain
     Dosage: 450 MG, PER DAY
     Route: 065
  10. PREGABALIN [Suspect]
     Active Substance: PREGABALIN
     Indication: Pain
  11. DULOXETINE [Suspect]
     Active Substance: DULOXETINE
     Indication: Colorectal cancer
     Dosage: 60 MILLIGRAM, QD, (PER DAY)
  12. DULOXETINE [Suspect]
     Active Substance: DULOXETINE
     Indication: Visceral pain
     Dosage: 60 MG, PER DAY
     Route: 065
  13. DULOXETINE [Suspect]
     Active Substance: DULOXETINE
     Indication: Pain
  14. KETOPROFEN [Suspect]
     Active Substance: KETOPROFEN
     Indication: Colorectal cancer
     Dosage: 200 MG, PER DAY
  15. KETOPROFEN [Suspect]
     Active Substance: KETOPROFEN
     Indication: Visceral pain
     Dosage: 200 MILLIGRAM DAILY
     Route: 065
  16. KETOPROFEN [Suspect]
     Active Substance: KETOPROFEN
     Indication: Pain
     Dosage: 200 MG, PER DAY
     Route: 065
  17. KETOPROFEN [Suspect]
     Active Substance: KETOPROFEN
     Dosage: 200 MILLIGRAM, QD, (200 MG PER DAY)
  18. LACTULOSE [Suspect]
     Active Substance: LACTULOSE
     Indication: Dyschezia
     Dosage: UNK
     Route: 065
  19. LACTULOSE [Suspect]
     Active Substance: LACTULOSE
     Dosage: UNK
     Route: 065
  20. LACTULOSE [Suspect]
     Active Substance: LACTULOSE
     Dosage: UNK
     Route: 065
  21. BISACODYL [Suspect]
     Active Substance: BISACODYL
     Indication: Dyschezia
     Dosage: UNK
     Route: 065
  22. BISACODYL [Suspect]
     Active Substance: BISACODYL
     Dosage: UNK
  23. HYDROXYZINE [Interacting]
     Active Substance: HYDROXYZINE HYDROCHLORIDE
     Indication: Insomnia
     Dosage: 100 MILLIGRAM QD (BEFORE BEDTIME)
  24. HYDROXYZINE [Interacting]
     Active Substance: HYDROXYZINE HYDROCHLORIDE
     Indication: Colorectal cancer
     Dosage: 100 MILLIGRAM QD (BEFORE BEDTIME)
     Route: 065
  25. HYDROXYZINE [Interacting]
     Active Substance: HYDROXYZINE HYDROCHLORIDE
     Indication: Visceral pain
     Dosage: 100 MG, 1X PER DAY BEFORE BEDTIME
     Route: 065
  26. HYDROXYZINE [Interacting]
     Active Substance: HYDROXYZINE HYDROCHLORIDE
     Indication: Off label use
     Dosage: UNK
     Route: 065
  27. HYDROXYZINE [Interacting]
     Active Substance: HYDROXYZINE HYDROCHLORIDE
     Indication: Terminal insomnia
     Dosage: UNK
  28. HYDROXYZINE [Interacting]
     Active Substance: HYDROXYZINE HYDROCHLORIDE
     Indication: Insomnia
  29. LORNOXICAM [Concomitant]
     Active Substance: LORNOXICAM
     Indication: Product used for unknown indication
     Dosage: UNK
  30. LORNOXICAM [Concomitant]
     Active Substance: LORNOXICAM
     Dosage: UNK
  31. LORNOXICAM [Concomitant]
     Active Substance: LORNOXICAM
     Dosage: UNK

REACTIONS (13)
  - Anticholinergic syndrome [Recovered/Resolved]
  - Dyschezia [Recovered/Resolved]
  - Drug interaction [Unknown]
  - Potentiating drug interaction [Unknown]
  - Rash [Unknown]
  - Constipation [Recovering/Resolving]
  - Insomnia [Unknown]
  - Pain [Recovering/Resolving]
  - Drug ineffective [Unknown]
  - Overlap syndrome [Unknown]
  - Functional gastrointestinal disorder [Recovered/Resolved]
  - Terminal insomnia [Unknown]
  - Off label use [Recovered/Resolved]
